FAERS Safety Report 5510175-9 (Version None)
Quarter: 2007Q4

REPORT INFORMATION
  Report Type: 
  Country: None (occurrence: None)
  Receive Date: 20071106
  Receipt Date: 20071019
  Transmission Date: 20080405
  Serious: Yes (Death)
  Sender: FDA-Public Use
  Company Number: 8025725

PATIENT
  Age: 41 Year
  Sex: Male

DRUGS (4)
  1. KEPPRA [Suspect]
     Dosage: 250 MG 2/D PO
     Route: 048
  2. KEPPRA [Suspect]
     Dosage: 250 MG 1/D PO
     Route: 048
  3. GABAPENTIN [Concomitant]
  4. EPILIM [Concomitant]

REACTIONS (1)
  - SOMNOLENCE [None]
